FAERS Safety Report 5989058-6 (Version None)
Quarter: 2008Q4

REPORT INFORMATION
  Report Type: 
  Country: None (occurrence: None)
  Receive Date: 20081209
  Receipt Date: 20081209
  Transmission Date: 20090506
  Serious: No
  Sender: FDA-Public Use
  Company Number: None

PATIENT
  Age: 67 Year
  Sex: Female
  Weight: 71.6683 kg

DRUGS (1)
  1. PROAIR HFA [Suspect]
     Indication: ASTHMA
     Dosage: 1-2 PUFFS 4 HRS/AS NEEDED INHAL
     Route: 055
     Dates: start: 20081207, end: 20081207

REACTIONS (6)
  - ABDOMINAL PAIN UPPER [None]
  - DRUG DELIVERY SYSTEM MALFUNCTION [None]
  - DRUG EFFECT DECREASED [None]
  - DYSPHONIA [None]
  - DYSPNOEA [None]
  - INCORRECT ROUTE OF DRUG ADMINISTRATION [None]
